FAERS Safety Report 10768920 (Version 1)
Quarter: 2015Q1

REPORT INFORMATION
  Report Type: Report from Study
  Country: CN (occurrence: CN)
  Receive Date: 20150206
  Receipt Date: 20150206
  Transmission Date: 20150721
  Serious: Yes (Death, Other)
  Sender: FDA-Public Use
  Company Number: CN-ROCHE-1530826

PATIENT

DRUGS (2)
  1. TOCILIZUMAB [Suspect]
     Active Substance: TOCILIZUMAB
     Indication: RHEUMATIC DISORDER
     Route: 065
  2. RITUXIMAB [Suspect]
     Active Substance: RITUXIMAB
     Indication: RHEUMATIC DISORDER
     Route: 065

REACTIONS (7)
  - Cardiac failure [Unknown]
  - Hepatic enzyme increased [Unknown]
  - Infection [Unknown]
  - Rash [Unknown]
  - Hypersensitivity [Unknown]
  - Injection site reaction [Unknown]
  - Death [Fatal]
